FAERS Safety Report 4776905-9 (Version None)
Quarter: 2005Q3

REPORT INFORMATION
  Report Type: 
  Country: None (occurrence: None)
  Receive Date: 20050921
  Receipt Date: 20050921
  Transmission Date: 20060218
  Serious: Yes (Hospitalization)
  Sender: FDA-Public Use
  Company Number: None

PATIENT
  Sex: Male
  Weight: 112.0385 kg

DRUGS (19)
  1. CISPLATIN [Suspect]
     Indication: OESOPHAGEAL CARCINOMA
     Dosage: 30 IV
     Route: 042
     Dates: start: 20050701, end: 20050805
  2. IRINOTECAN HCL [Suspect]
     Indication: OESOPHAGEAL CARCINOMA
     Dosage: 65 IV
     Route: 042
     Dates: start: 20050701, end: 20050805
  3. CETUXIMAB (MG/M2) WK 1-9; 15-44 [Suspect]
     Indication: OESOPHAGEAL CARCINOMA
     Dosage: SEE IMAGE
     Route: 042
     Dates: start: 20050624, end: 20050826
  4. XRT; D1-5, WK 2-7 [Suspect]
     Indication: OESOPHAGEAL CARCINOMA
     Dosage: 180GCY
     Dates: start: 20050627, end: 20050804
  5. ADDERALL 10 [Concomitant]
  6. ALPRAZOLAM [Concomitant]
  7. CARAFATE [Concomitant]
  8. COGENTIN [Concomitant]
  9. DIOVAN [Concomitant]
  10. IMDUR [Concomitant]
  11. LIPITOR [Concomitant]
  12. NEXIUM [Concomitant]
  13. PROZAC [Concomitant]
  14. RISPERDAL [Concomitant]
  15. TOPAMAX [Concomitant]
  16. TRICOR [Concomitant]
  17. WELLBUTRIN [Concomitant]
  18. ZETIA [Concomitant]
  19. ZYPREXA [Concomitant]

REACTIONS (7)
  - DIZZINESS [None]
  - HAEMORRHOIDAL HAEMORRHAGE [None]
  - HYPOVOLAEMIA [None]
  - LETHARGY [None]
  - LOSS OF CONSCIOUSNESS [None]
  - ORAL INTAKE REDUCED [None]
  - SYNCOPE [None]
